FAERS Safety Report 8925836 (Version 1)
Quarter: 2012Q4

REPORT INFORMATION
  Report Type: 
  Country: US (occurrence: US)
  Receive Date: 20121126
  Receipt Date: 20121126
  Transmission Date: 20130627
  Serious: Yes (Hospitalization, Other)
  Sender: FDA-Public Use
  Company Number: US-ROCHE-1096471

PATIENT
  Age: 26 None
  Sex: Male
  Weight: 68.1 kg

DRUGS (3)
  1. ACCUTANE [Suspect]
     Indication: ACNE
     Route: 065
     Dates: start: 199802, end: 199905
  2. ACCUTANE [Suspect]
     Route: 065
     Dates: start: 199804, end: 199808
  3. ACCUTANE [Suspect]
     Route: 065
     Dates: end: 199905

REACTIONS (3)
  - Colitis ulcerative [Unknown]
  - Intestinal obstruction [Unknown]
  - Pouchitis [Recovering/Resolving]
